FAERS Safety Report 4993420-8 (Version None)
Quarter: 2006Q2

REPORT INFORMATION
  Report Type: 
  Country: None (occurrence: None)
  Receive Date: 20060505
  Receipt Date: 20060424
  Transmission Date: 20061013
  Serious: Yes (Hospitalization)
  Sender: FDA-Public Use
  Company Number: JP-BRISTOL-MYERS SQUIBB COMPANY-13363460

PATIENT
  Age: 43 Year
  Sex: Male

DRUGS (6)
  1. ENDOXAN [Suspect]
     Indication: NON-HODGKIN'S LYMPHOMA
     Dates: start: 20001201
  2. METHOTREXATE [Suspect]
     Indication: NON-HODGKIN'S LYMPHOMA
  3. BLEOMYCIN [Suspect]
     Indication: NON-HODGKIN'S LYMPHOMA
  4. ONCOVIN [Suspect]
     Indication: NON-HODGKIN'S LYMPHOMA
  5. ADRIACIN [Suspect]
     Indication: NON-HODGKIN'S LYMPHOMA
  6. PREDNISOLONE [Concomitant]
     Indication: NON-HODGKIN'S LYMPHOMA

REACTIONS (1)
  - CHRONIC EOSINOPHILIC LEUKAEMIA [None]
